FAERS Safety Report 6479746-X (Version None)
Quarter: 2009Q4

REPORT INFORMATION
  Report Type: 
  Country: None (occurrence: None)
  Receive Date: 20091208
  Receipt Date: 20091126
  Transmission Date: 20100525
  Serious: Yes (Other)
  Sender: FDA-Public Use
  Company Number: PHHY2009BR52254

PATIENT
  Age: 42 Year
  Sex: Female

DRUGS (1)
  1. PARLODEL [Suspect]
     Indication: LACTATION PUERPERAL INCREASED
     Dosage: 2.5 MG/DAY
     Dates: start: 20091126

REACTIONS (4)
  - ABDOMINAL PAIN UPPER [None]
  - ASTHENIA [None]
  - DYSSTASIA [None]
  - LABYRINTHITIS [None]
